FAERS Safety Report 7764722-7 (Version None)
Quarter: 2011Q3

REPORT INFORMATION
  Report Type: 
  Country: None (occurrence: None)
  Receive Date: 20110916
  Receipt Date: 20110902
  Transmission Date: 20111222
  Serious: No
  Sender: FDA-Public Use
  Company Number: TUK2011A00130

PATIENT
  Age: 83 Year
  Sex: Male

DRUGS (10)
  1. ACTOS [Suspect]
     Indication: DIABETES MELLITUS
     Dosage: (45 MG)
     Route: 048
  2. ATENOLOL [Concomitant]
  3. GLIMEPIRIDE [Concomitant]
  4. METFORMIN HCL [Concomitant]
  5. ACETAMINOPHEN [Concomitant]
  6. PREGABALIN [Concomitant]
  7. RAMIPRIL [Concomitant]
  8. ASPIRIN [Concomitant]
  9. MAGNESIUM HYDROXIDE TAB [Concomitant]
  10. SIMVASTATIN [Concomitant]

REACTIONS (3)
  - GLOMERULAR FILTRATION RATE DECREASED [None]
  - BLADDER TRANSITIONAL CELL CARCINOMA [None]
  - RENAL IMPAIRMENT [None]
